FAERS Safety Report 5320128-1 (Version None)
Quarter: 2007Q2

REPORT INFORMATION
  Report Type: 
  Country: None (occurrence: None)
  Receive Date: 20070502
  Receipt Date: 20070419
  Transmission Date: 20071010
  Serious: Yes (Other)
  Sender: FDA-Public Use
  Company Number: 2007317147

PATIENT
  Sex: Male

DRUGS (1)
  1. BENADRYL [Suspect]
     Indication: SNEEZING
     Dosage: 1/3 TO 1/4 OF A BOTTLE, ORAL
     Route: 048
     Dates: start: 20070419

REACTIONS (3)
  - DIZZINESS [None]
  - INCORRECT DOSE ADMINISTERED [None]
  - SPEECH DISORDER [None]
